FAERS Safety Report 10837948 (Version 1)
Quarter: 2015Q1

REPORT INFORMATION
  Report Type: Report from Study
  Country: US (occurrence: US)
  Receive Date: 20150219
  Receipt Date: 20150219
  Transmission Date: 20150721
  Serious: No
  Sender: FDA-Public Use
  Company Number: US-ABBVIE-14P-163-1231662-00

PATIENT
  Age: 44 Year
  Sex: Female
  Weight: 124.85 kg

DRUGS (2)
  1. HUMIRA [Suspect]
     Active Substance: ADALIMUMAB
     Indication: CROHN^S DISEASE
     Route: 058
     Dates: start: 201404
  2. HUMIRA [Suspect]
     Active Substance: ADALIMUMAB
     Indication: SARCOIDOSIS

REACTIONS (5)
  - Headache [Recovered/Resolved]
  - Overdose [Recovered/Resolved]
  - Sarcoidosis [Unknown]
  - Off label use [Unknown]
  - Seasonal allergy [Not Recovered/Not Resolved]

NARRATIVE: CASE EVENT DATE: 201404
